FAERS Safety Report 4965957-9 (Version None)
Quarter: 2006Q2

REPORT INFORMATION
  Report Type: 
  Country: None (occurrence: None)
  Receive Date: 20060403
  Receipt Date: 20060322
  Transmission Date: 20061013
  Serious: Yes (Disabling)
  Sender: FDA-Public Use
  Company Number: 2006039853

PATIENT
  Age: 67 Year
  Sex: Male
  Weight: 94.1 kg

DRUGS (2)
  1. DETRUSITOL XL (TOLTERODINE) [Suspect]
     Indication: HYPERTONIC BLADDER
     Dosage: (2 IN 1 D), ORAL
     Route: 048
     Dates: start: 20060130, end: 20060205
  2. DETRUSITOL XL (TOLTERODINE) [Suspect]
     Indication: URINARY INCONTINENCE
     Dosage: (2 IN 1 D), ORAL
     Route: 048
     Dates: start: 20060130, end: 20060205

REACTIONS (2)
  - CONDITION AGGRAVATED [None]
  - TREMOR [None]
